FAERS Safety Report 19670256 (Version 1)
Quarter: 2021Q3

REPORT INFORMATION
  Report Type: Spontaneous
  Country: US (occurrence: US)
  Receive Date: 20210806
  Receipt Date: 20210806
  Transmission Date: 20211014
  Serious: Yes (Other)
  Sender: FDA-Public Use
  Company Number: US-SAOL THERAPEUTICS-2021SAO00088

PATIENT
  Age: 33 Year
  Sex: Female
  Weight: 56.24 kg

DRUGS (3)
  1. LIORESAL [Suspect]
     Active Substance: BACLOFEN
     Dosage: 689.3 ?G, \DAY
     Route: 037
     Dates: end: 20210303
  2. LIORESAL [Suspect]
     Active Substance: BACLOFEN
     Dosage: UNK; ^INCREASES IN DOSING^
     Route: 037
  3. LIORESAL [Suspect]
     Active Substance: BACLOFEN
     Dosage: UNK; DOSE REDUCED BY 35%
     Route: 037
     Dates: start: 20210303

REACTIONS (3)
  - Implant site infection [Recovered/Resolved]
  - Complication associated with device [Recovered/Resolved]
  - Overdose [Unknown]

NARRATIVE: CASE EVENT DATE: 2021
